FAERS Safety Report 5912266-7 (Version None)
Quarter: 2008Q4

REPORT INFORMATION
  Report Type: 
  Country: None (occurrence: None)
  Receive Date: 20081008
  Receipt Date: 20080923
  Transmission Date: 20090506
  Serious: Yes (Hospitalization)
  Sender: FDA-Public Use
  Company Number: B0540059A

PATIENT
  Age: 21 Month
  Sex: Female

DRUGS (1)
  1. AUGMENTIN '125' [Suspect]
     Indication: UPPER RESPIRATORY TRACT INFECTION
     Route: 048

REACTIONS (4)
  - BLISTER [None]
  - DERMATOSIS [None]
  - LINEAR IGA DISEASE [None]
  - STAPHYLOCOCCAL SEPSIS [None]
